FAERS Safety Report 9802120 (Version 1)
Quarter: 2014Q1

REPORT INFORMATION
  Report Type: Spontaneous
  Country: GB (occurrence: GB)
  Receive Date: 20140107
  Receipt Date: 20140107
  Transmission Date: 20141002
  Serious: Yes (Hospitalization)
  Sender: FDA-Public Use
  Company Number: GB-WATSON-2013-23959

PATIENT
  Sex: 0

DRUGS (9)
  1. AMOXICILLIN (UNKNOWN) [Suspect]
     Indication: PRODUCT USED FOR UNKNOWN INDICATION
     Dosage: 500 MG, TID
     Route: 048
     Dates: start: 20110804, end: 20110811
  2. TRIMETHOPRIM (UNKNOWN) [Suspect]
     Indication: PRODUCT USED FOR UNKNOWN INDICATION
     Dosage: 200 MG, UNK; 3 DOSES
     Route: 048
     Dates: start: 20111012, end: 20111018
  3. METRONIDAZOLE (UNKNOWN) [Suspect]
     Indication: PRODUCT USED FOR UNKNOWN INDICATION
     Dosage: 500 MG, TID
     Route: 042
     Dates: start: 20111111
  4. CO-AMOXICLAV [Suspect]
     Indication: PRODUCT USED FOR UNKNOWN INDICATION
     Dosage: 1.2 G, TID
     Route: 042
     Dates: start: 20111103, end: 20111114
  5. LANSOPRAZOLE (UNKNOWN) [Suspect]
     Indication: PRODUCT USED FOR UNKNOWN INDICATION
     Dosage: UNK
     Route: 048
  6. TEICOPLANIN (UNKNOWN) [Suspect]
     Indication: PRODUCT USED FOR UNKNOWN INDICATION
     Dosage: 400 MG, BID
     Route: 042
  7. GENTAMICIN (UNKNOWN) [Suspect]
     Indication: PRODUCT USED FOR UNKNOWN INDICATION
     Dosage: 300 MG, UNK
     Route: 040
     Dates: start: 20111018, end: 20111018
  8. MEROPENEM (UNKNOWN) [Suspect]
     Indication: PRODUCT USED FOR UNKNOWN INDICATION
     Dosage: 1 G, TID;RECEIVED 4 DOSES BETWEEN 2ND AND 3RD NOVEMBER.
     Route: 042
     Dates: start: 20111025, end: 20111103
  9. ERTAPENEM [Suspect]
     Indication: GRAM STAIN POSITIVE
     Dosage: 500 MG, UNK
     Route: 042
     Dates: start: 20111018, end: 20111025

REACTIONS (1)
  - Clostridium difficile infection [Recovered/Resolved]
